FAERS Safety Report 10024734 (Version 1)
Quarter: 2014Q1

REPORT INFORMATION
  Report Type: Spontaneous
  Country: US (occurrence: None)
  Receive Date: 20140304
  Receipt Date: 20140304
  Transmission Date: 20141002
  Serious: Yes (Hospitalization)
  Sender: FDA-Public Use
  Company Number: KV201300277

PATIENT
  Age: 26 Year
  Sex: Female

DRUGS (3)
  1. MAKENA [Suspect]
     Indication: PREMATURE DELIVERY
     Route: 030
     Dates: start: 20130830
  2. IRON [Concomitant]
  3. PRENATAL VITAMINS [Concomitant]

REACTIONS (3)
  - Premature rupture of membranes [None]
  - Maternal exposure during pregnancy [None]
  - Refusal of treatment by patient [None]
